FAERS Safety Report 23564761 (Version 1)
Quarter: 2024Q1

REPORT INFORMATION
  Report Type: Spontaneous
  Country: US (occurrence: None)
  Receive Date: 20240223
  Receipt Date: 20240223
  Transmission Date: 20240409
  Serious: Yes (Death)
  Sender: FDA-Public Use
  Company Number: None

PATIENT
  Sex: Female

DRUGS (5)
  1. GEFITINIB [Suspect]
     Active Substance: GEFITINIB
     Indication: Lung neoplasm malignant
     Dosage: FREQUENCY : DAILY;?
     Dates: start: 202306
  2. NORMAL SALINE FLUSH [Concomitant]
  3. YORVIAL SALINE FLUSH [Concomitant]
  4. EPINEPHRINE [Concomitant]
  5. GAMMGARD LIQ SOLN [Concomitant]

REACTIONS (1)
  - Death [None]
